FAERS Safety Report 6675366-2 (Version None)
Quarter: 2010Q2

REPORT INFORMATION
  Report Type: 
  Country: None (occurrence: None)
  Receive Date: 20100409
  Receipt Date: 20100224
  Transmission Date: 20101027
  Serious: No
  Sender: FDA-Public Use
  Company Number: A0847429A

PATIENT
  Age: 59 Year
  Sex: Female

DRUGS (2)
  1. TYKERB [Suspect]
     Indication: DRUG USE FOR UNKNOWN INDICATION
     Dosage: 1500MGD PER DAY
     Route: 048
     Dates: start: 20100219
  2. FEMARA [Suspect]
     Indication: DRUG USE FOR UNKNOWN INDICATION
     Route: 065
     Dates: start: 20100212, end: 20100224

REACTIONS (4)
  - ADVERSE DRUG REACTION [None]
  - DIARRHOEA [None]
  - EPISTAXIS [None]
  - VOMITING [None]
